FAERS Safety Report 4283095-8 (Version None)
Quarter: 2004Q1

REPORT INFORMATION
  Report Type: 
  Country: None (occurrence: None)
  Receive Date: 20040129
  Receipt Date: 20040123
  Transmission Date: 20041129
  Serious: Yes (Hospitalization)
  Sender: FDA-Public Use
  Company Number: 2004195540US

PATIENT
  Age: 43 Year
  Sex: Female
  Weight: 93 kg

DRUGS (3)
  1. DEPO-PROVERA [Suspect]
     Indication: MENORRHAGIA
     Dosage: 150 MG; 150MG, INJ GIVEN 1MONTH LATE, 150MG, MOST RECENT INJ
     Dates: start: 20010101, end: 20010101
  2. DEPO-PROVERA [Suspect]
     Indication: MENORRHAGIA
     Dosage: 150 MG; 150MG, INJ GIVEN 1MONTH LATE, 150MG, MOST RECENT INJ
     Dates: start: 20031001, end: 20031001
  3. DEPO-PROVERA [Suspect]
     Indication: MENORRHAGIA
     Dosage: 150 MG; 150MG, INJ GIVEN 1MONTH LATE, 150MG, MOST RECENT INJ
     Dates: start: 20040118, end: 20040118

REACTIONS (6)
  - AMENORRHOEA [None]
  - DRUG INTERACTION [None]
  - HAEMOGLOBIN DECREASED [None]
  - MENORRHAGIA [None]
  - TOOTH INFECTION [None]
  - UNEXPECTED THERAPEUTIC DRUG EFFECT [None]
